FAERS Safety Report 16846705 (Version 2)
Quarter: 2019Q3

REPORT INFORMATION
  Report Type: Spontaneous
  Country: FR (occurrence: FR)
  Receive Date: 20190924
  Receipt Date: 20190930
  Transmission Date: 20191005
  Serious: Yes (Other)
  Sender: FDA-Public Use
  Company Number: FR-MYLANLABS-2019M1088723

PATIENT
  Age: 1 Month
  Sex: Male
  Weight: 5.14 kg

DRUGS (1)
  1. ACICLOVIR MYLAN 250 MG, POWDER FOR SOLUTION FOR I.V. INJECTION [Suspect]
     Active Substance: ACYCLOVIR
     Indication: HERPES VIRUS INFECTION
     Dosage: 300 MILLIGRAM, QD
     Route: 042
     Dates: start: 20190417, end: 20190418

REACTIONS (2)
  - Injection site extravasation [Not Recovered/Not Resolved]
  - Oedema [Not Recovered/Not Resolved]

NARRATIVE: CASE EVENT DATE: 20190418
